FAERS Safety Report 8124924-7 (Version None)
Quarter: 2012Q1

REPORT INFORMATION
  Report Type: 
  Country: None (occurrence: None)
  Receive Date: 20120209
  Receipt Date: 20120203
  Transmission Date: 20120608
  Serious: Yes (Other)
  Sender: FDA-Public Use
  Company Number: IT-JNJFOC-20120202586

PATIENT
  Age: 22 Year
  Sex: Male

DRUGS (2)
  1. ALCOHOL [Suspect]
     Indication: SELF INJURIOUS BEHAVIOUR
     Route: 065
  2. RISPERDAL [Suspect]
     Indication: SELF INJURIOUS BEHAVIOUR
     Route: 048
     Dates: start: 20120203

REACTIONS (2)
  - INTENTIONAL OVERDOSE [None]
  - SELF INJURIOUS BEHAVIOUR [None]
